FAERS Safety Report 9258934 (Version 1)
Quarter: 2013Q2

REPORT INFORMATION
  Report Type: Spontaneous
  Country: IT (occurrence: IT)
  Receive Date: 20130426
  Receipt Date: 20130426
  Transmission Date: 20140414
  Serious: Yes (Other)
  Sender: FDA-Public Use
  Company Number: IT-GLAXOSMITHKLINE-B0886099A

PATIENT
  Age: 20 Year
  Sex: Female

DRUGS (1)
  1. EUTIMIL [Suspect]
     Indication: DEPRESSION
     Route: 048
     Dates: start: 20130306

REACTIONS (9)
  - Shock [Recovering/Resolving]
  - Grand mal convulsion [Recovering/Resolving]
  - Convulsion [Recovering/Resolving]
  - Amnesia [Recovering/Resolving]
  - Headache [Recovering/Resolving]
  - Malaise [Recovering/Resolving]
  - Fatigue [Recovering/Resolving]
  - Tremor [Recovering/Resolving]
  - Muscle rigidity [Recovering/Resolving]
